FAERS Safety Report 5769947-8 (Version None)
Quarter: 2008Q2

REPORT INFORMATION
  Report Type: 
  Country: None (occurrence: None)
  Receive Date: 20080613
  Receipt Date: 20080417
  Transmission Date: 20081010
  Serious: Yes (Hospitalization)
  Sender: FDA-Public Use
  Company Number: US-ABBOTT-08P-163-0447826-00

PATIENT
  Sex: Male
  Weight: 70.37 kg

DRUGS (12)
  1. HUMIRA [Suspect]
     Indication: PSORIATIC ARTHROPATHY
     Route: 058
     Dates: start: 20070901, end: 20071109
  2. HUMIRA [Suspect]
     Dates: start: 20071221, end: 20071221
  3. CELECOXIB [Concomitant]
     Indication: ARTHRITIS
     Route: 048
     Dates: start: 20070401
  4. LYRACA [Concomitant]
     Indication: NEURALGIA
     Dates: start: 20060401
  5. DULOXETINE HYDROCHLORIDE [Concomitant]
     Indication: DEPRESSION
     Dosage: DAILY
     Route: 048
     Dates: start: 20060401
  6. DULOXETINE HYDROCHLORIDE [Concomitant]
     Indication: PAIN
  7. NORTRIPTYLINE HYDROCHLORIDE [Concomitant]
     Indication: INSOMNIA
     Dosage: MADX 50
     Dates: start: 20040101
  8. HYDROMORPHONE HYDROCHLORIDE [Concomitant]
     Indication: PAIN
     Dates: start: 20050101
  9. CLOPIDOGREL [Concomitant]
     Indication: ANEURYSM
     Dosage: DAILY
     Route: 048
     Dates: start: 20071201
  10. CLOPIDOGREL [Concomitant]
  11. ASPIRIN [Concomitant]
     Indication: PROPHYLAXIS
     Dosage: DAILY
     Route: 048
     Dates: start: 20071201
  12. ASPIRIN [Concomitant]

REACTIONS (7)
  - ASTHENIA [None]
  - BLOOD PRESSURE DECREASED [None]
  - CARDIAC DISORDER [None]
  - CHEST PAIN [None]
  - FALL [None]
  - INTRACRANIAL ANEURYSM [None]
  - MOVEMENT DISORDER [None]
